FAERS Safety Report 9161946 (Version 1)
Quarter: 2013Q1

REPORT INFORMATION
  Report Type: Spontaneous
  Country: US (occurrence: None)
  Receive Date: 20130225
  Receipt Date: 20130225
  Transmission Date: 20140127
  Serious: Yes (Hospitalization)
  Sender: FDA-Public Use
  Company Number: 145560

PATIENT
  Age: 65 Year
  Sex: Male

DRUGS (1)
  1. MITOMYCIN [Suspect]
     Indication: NASOPHARYNGEAL CANCER

REACTIONS (4)
  - Dysphagia [None]
  - Pneumonia aspiration [None]
  - Dry mouth [None]
  - Trismus [None]
